FAERS Safety Report 4961500-9 (Version None)
Quarter: 2006Q1

REPORT INFORMATION
  Report Type: 
  Country: None (occurrence: None)
  Receive Date: 20060329
  Receipt Date: 20060315
  Transmission Date: 20060701
  Serious: Yes (Other)
  Sender: FDA-Public Use
  Company Number: S06-CAN-01265-01

PATIENT
  Age: 53 Year
  Sex: Male

DRUGS (2)
  1. CELEXA [Suspect]
     Dosage: 160 MG ONCE; PO
     Route: 048
  2. SEROQUEL [Suspect]
     Dosage: 250 MG,

REACTIONS (2)
  - COORDINATION ABNORMAL [None]
  - SOMNOLENCE [None]
